FAERS Safety Report 6805165-X (Version None)
Quarter: 2010Q2

REPORT INFORMATION
  Report Type: 
  Country: None (occurrence: None)
  Receive Date: 20100628
  Receipt Date: 20071001
  Transmission Date: 20101027
  Serious: No
  Sender: FDA-Public Use
  Company Number: US-PFIZER INC-2007060522

PATIENT
  Sex: Male
  Weight: 84.1 kg

DRUGS (2)
  1. XALATAN [Suspect]
     Indication: GLAUCOMA
     Route: 047
     Dates: start: 20070101
  2. TIMOLOL MALEATE [Concomitant]
     Route: 047

REACTIONS (3)
  - BLEPHARITIS [None]
  - EYELID FUNCTION DISORDER [None]
  - GROWTH OF EYELASHES [None]
